FAERS Safety Report 5599490-0 (Version None)
Quarter: 2007Q4

REPORT INFORMATION
  Report Type: 
  Country: None (occurrence: None)
  Receive Date: 20071231
  Receipt Date: 20070522
  Transmission Date: 20080405
  Serious: Yes (Other)
  Sender: FDA-Public Use
  Company Number: 2007041385

PATIENT

DRUGS (2)
  1. FLUCONAZOLE [Suspect]
  2. CIPROFLOXACIN [Suspect]

REACTIONS (1)
  - CONVULSION [None]
